FAERS Safety Report 23380003 (Version 7)
Quarter: 2024Q2

REPORT INFORMATION
  Report Type: Report from Study
  Country: CA (occurrence: CA)
  Receive Date: 20240109
  Receipt Date: 20240517
  Transmission Date: 20240715
  Serious: Yes (Hospitalization)
  Sender: FDA-Public Use
  Company Number: CA-ABBVIE-5575516

PATIENT
  Age: 81 Year
  Sex: Male

DRUGS (13)
  1. VENETOCLAX [Suspect]
     Active Substance: VENETOCLAX
     Indication: Acute myeloid leukaemia
     Route: 048
     Dates: start: 20231115, end: 20231115
  2. VENETOCLAX [Suspect]
     Active Substance: VENETOCLAX
     Indication: Acute myeloid leukaemia
     Dosage: LAST ADMIN DATE: 2024
     Route: 048
     Dates: start: 20240103
  3. VENETOCLAX [Suspect]
     Active Substance: VENETOCLAX
     Indication: Acute myeloid leukaemia
     Route: 048
     Dates: start: 20231117, end: 20231208
  4. VENETOCLAX [Suspect]
     Active Substance: VENETOCLAX
     Indication: Acute myeloid leukaemia
     Route: 048
     Dates: start: 20240220, end: 20240227
  5. VENETOCLAX [Suspect]
     Active Substance: VENETOCLAX
     Indication: Acute myeloid leukaemia
     Route: 048
     Dates: start: 20231116, end: 20231116
  6. AZACITIDINE [Suspect]
     Active Substance: AZACITIDINE
     Indication: Product used for unknown indication
     Route: 048
     Dates: start: 20231115, end: 20231121
  7. AZACITIDINE [Suspect]
     Active Substance: AZACITIDINE
     Indication: Product used for unknown indication
     Dosage: STOPPED IN 2024
     Route: 048
     Dates: start: 20240103
  8. AZACITIDINE [Suspect]
     Active Substance: AZACITIDINE
     Indication: Product used for unknown indication
     Route: 048
     Dates: start: 20240220, end: 20240227
  9. COVID-19 vaccine [Concomitant]
     Indication: COVID-19 prophylaxis
     Dosage: NUMBER OF VACCINATION 1?MIXED
     Route: 030
  10. COVID-19 vaccine [Concomitant]
     Indication: COVID-19 prophylaxis
     Dosage: NUMBER OF VACCINATION 2?MIXED
     Route: 030
  11. COVID-19 vaccine [Concomitant]
     Indication: COVID-19 prophylaxis
     Dosage: NUMBER OF VACCINATION 3?MIXED
     Route: 030
  12. COVID-19 vaccine [Concomitant]
     Indication: COVID-19 prophylaxis
     Dosage: NUMBER OF VACCINATION 4?MIXED
     Route: 030
  13. COVID-19 vaccine [Concomitant]
     Indication: COVID-19 prophylaxis
     Dosage: NUMBER OF VACCINATION 5?MIXED
     Route: 030

REACTIONS (9)
  - Clostridium colitis [Recovered/Resolved]
  - Mobility decreased [Unknown]
  - Delirium [Recovered/Resolved]
  - Atelectasis [Unknown]
  - Rash maculo-papular [Recovered/Resolved]
  - Clostridium test positive [Recovered/Resolved]
  - Febrile neutropenia [Unknown]
  - Hypoxia [Recovered/Resolved]
  - Diarrhoea [Unknown]

NARRATIVE: CASE EVENT DATE: 20230101
